FAERS Safety Report 5164927-8 (Version None)
Quarter: 2006Q4

REPORT INFORMATION
  Report Type: 
  Country: None (occurrence: None)
  Receive Date: 20061124
  Receipt Date: 20061110
  Transmission Date: 20070319
  Serious: Yes (Death, Other)
  Sender: FDA-Public Use
  Company Number: AU-2006-035559

PATIENT
  Age: 66 Year
  Sex: Female

DRUGS (4)
  1. FLUDARABINE PHOSPHATE [Suspect]
     Indication: B-CELL LYMPHOMA
     Dosage: 4 CYCLES
  2. CYCLOPHOSPHAMIDE [Suspect]
     Indication: B-CELL LYMPHOMA
     Dosage: 4 CYCLES
  3. RITUXIMAB(RITUXIMAB) [Suspect]
     Indication: B-CELL LYMPHOMA
  4. MITOXANTRONE [Suspect]
     Indication: B-CELL LYMPHOMA

REACTIONS (3)
  - MYELODYSPLASTIC SYNDROME [None]
  - NEUTROPENIC SEPSIS [None]
  - PANCYTOPENIA [None]
